FAERS Safety Report 8900426 (Version 2)
Quarter: 2012Q4

REPORT INFORMATION
  Report Type: Report from Study
  Country: US (occurrence: US)
  Receive Date: 20121109
  Receipt Date: 20121112
  Transmission Date: 20130627
  Serious: Yes (Hospitalization, Other)
  Sender: FDA-Public Use
  Company Number: US-ABBOTT-12P-163-0999729-00

PATIENT
  Age: 58 None
  Sex: Female

DRUGS (6)
  1. HUMIRA [Suspect]
     Indication: ARTHRITIS
  2. ADVAIR [Concomitant]
     Indication: PRODUCT USED FOR UNKNOWN INDICATION
     Dosage: 1 puff daily
  3. SINGULAIR [Concomitant]
     Indication: PRODUCT USED FOR UNKNOWN INDICATION
     Dosage: 10mg daily
  4. ALBUTEROL [Concomitant]
     Indication: ASTHMA
     Dosage: inhaler, 2 puffs every 4 hours as needed
     Route: 055
  5. ZOCOR [Concomitant]
     Indication: BLOOD CHOLESTEROL INCREASED
     Dosage: 20mg daily
  6. OMEPRAZOLE [Concomitant]
     Indication: GASTROOESOPHAGEAL REFLUX DISEASE
     Dosage: 20mg daily

REACTIONS (6)
  - Off label use [Unknown]
  - Chills [Recovering/Resolving]
  - Lobar pneumonia [Unknown]
  - Haemoptysis [Recovering/Resolving]
  - Pyrexia [Unknown]
  - White blood cell count abnormal [Unknown]
